FAERS Safety Report 8077802-6 (Version None)
Quarter: 2012Q1

REPORT INFORMATION
  Report Type: 
  Country: None (occurrence: None)
  Receive Date: 20120127
  Receipt Date: 20120123
  Transmission Date: 20120608
  Serious: Yes (Hospitalization, Other)
  Sender: FDA-Public Use
  Company Number: DE-ABBOTT-11P-062-0886279-00

PATIENT
  Sex: Male
  Weight: 95 kg

DRUGS (11)
  1. NITRENDIPIN [Concomitant]
     Indication: PRODUCT USED FOR UNKNOWN INDICATION
     Dosage: 20 MG DAILY DOSE
  2. HUMIRA [Suspect]
     Indication: PSORIASIS
  3. PANTOPRAZOLE [Concomitant]
     Indication: PRODUCT USED FOR UNKNOWN INDICATION
  4. ALLOBETA [Concomitant]
     Indication: PRODUCT USED FOR UNKNOWN INDICATION
  5. CLONIDINE HCL [Concomitant]
     Indication: PRODUCT USED FOR UNKNOWN INDICATION
  6. VOLTAREN [Concomitant]
     Indication: PRODUCT USED FOR UNKNOWN INDICATION
  7. HUMIRA [Suspect]
     Indication: RHEUMATOID ARTHRITIS
     Route: 058
     Dates: start: 20101102, end: 20111201
  8. ALLOPURINOL [Concomitant]
     Indication: PRODUCT USED FOR UNKNOWN INDICATION
     Dosage: 100 MG DAILY DOSE
  9. TORSEMIDE [Concomitant]
     Indication: PRODUCT USED FOR UNKNOWN INDICATION
     Dosage: 10 MG DAILY DOSE
  10. METHOTREXATE [Concomitant]
     Indication: PRODUCT USED FOR UNKNOWN INDICATION
  11. VALORON [Concomitant]
     Indication: PRODUCT USED FOR UNKNOWN INDICATION

REACTIONS (10)
  - RELAPSING FEVER [None]
  - SPLENOMEGALY [None]
  - LYMPHADENOPATHY MEDIASTINAL [None]
  - GASTRITIS [None]
  - PNEUMOCONIOSIS [None]
  - CHILLS [None]
  - PNEUMONIA [None]
  - LUNG CYST [None]
  - LYMPHADENOPATHY [None]
  - PYREXIA [None]
